FAERS Safety Report 23949386 (Version 2)
Quarter: 2025Q1

REPORT INFORMATION
  Report Type: Spontaneous
  Country: PL (occurrence: PL)
  Receive Date: 20240607
  Receipt Date: 20250206
  Transmission Date: 20250409
  Serious: Yes (Other)
  Sender: RANBAXY
  Company Number: PL-SUN PHARMACEUTICAL INDUSTRIES LTD-2024R1-449978

PATIENT
  Age: 38 Year
  Sex: Female

DRUGS (5)
  1. ATORVASTATIN [Suspect]
     Active Substance: ATORVASTATIN
     Indication: Hyperinsulinaemia
     Dosage: 10 MILLIGRAM, DAILY
     Route: 065
     Dates: start: 2020
  2. METFORMIN [Suspect]
     Active Substance: METFORMIN HYDROCHLORIDE
     Indication: Hyperinsulinaemia
     Dosage: 750 MILLIGRAM, DAILY
     Route: 065
     Dates: start: 2020
  3. CLONIDINE [Suspect]
     Active Substance: CLONIDINE
     Indication: Adrenogenital syndrome
     Dosage: 75 MILLIGRAM, DAILY
     Route: 065
     Dates: start: 2020
  4. DEXAMETHASONE [Suspect]
     Active Substance: DEXAMETHASONE
     Indication: Adrenogenital syndrome
     Dosage: 0.5 MILLIGRAM, DAILY, 1 PILL, ALTERNATING WITH 1/2 PILL PER DAY IN THE EVENING DOSE
     Route: 065
     Dates: start: 2020
  5. SPIRONOLACTONE [Suspect]
     Active Substance: SPIRONOLACTONE
     Indication: Adrenogenital syndrome
     Dosage: 150 MILLIGRAM, DAILY
     Route: 065
     Dates: start: 2020

REACTIONS (1)
  - Therapeutic response decreased [Unknown]

NARRATIVE: CASE EVENT DATE: 20210101
